FAERS Safety Report 6965189-9 (Version None)
Quarter: 2010Q3

REPORT INFORMATION
  Report Type: 
  Country: None (occurrence: None)
  Receive Date: 20100903
  Receipt Date: 20100826
  Transmission Date: 20110219
  Serious: Yes (Life-Threatening, Hospitalization, Other)
  Sender: FDA-Public Use
  Company Number: GR-JNJFOC-20091100803

PATIENT
  Age: 67 Year
  Sex: Male

DRUGS (4)
  1. REMICADE [Suspect]
     Indication: PSORIASIS
     Route: 042
  2. REMICADE [Suspect]
     Dosage: 20TH INFUSION
     Route: 042
  3. AERIUS [Suspect]
     Indication: PREMEDICATION
  4. MICARDIS [Concomitant]
     Indication: HYPERTENSION

REACTIONS (6)
  - APNOEA [None]
  - BLOOD PRESSURE DECREASED [None]
  - CARDIAC ARREST [None]
  - CYANOSIS [None]
  - HEART RATE IRREGULAR [None]
  - INFUSION RELATED REACTION [None]
